FAERS Safety Report 14995192 (Version 1)
Quarter: 2018Q2

REPORT INFORMATION
  Report Type: Spontaneous
  Country: IT (occurrence: IT)
  Receive Date: 20180611
  Receipt Date: 20180611
  Transmission Date: 20180711
  Serious: Yes (Death)
  Sender: FDA-Public Use
  Company Number: IT-RECORDATI RARE DISEASES INC.-IT-R13005-18-00151

PATIENT
  Sex: Female

DRUGS (8)
  1. VINCRISTINE [Suspect]
     Active Substance: VINCRISTINE
     Indication: ALVEOLAR RHABDOMYOSARCOMA
     Route: 065
  2. CYCLOPHOSPHAMIDE. [Suspect]
     Active Substance: CYCLOPHOSPHAMIDE
     Indication: ALVEOLAR RHABDOMYOSARCOMA
     Route: 065
  3. IFOSFAMIDE. [Suspect]
     Active Substance: IFOSFAMIDE
     Indication: ALVEOLAR RHABDOMYOSARCOMA
     Route: 065
  4. DOXORUBICIN [Suspect]
     Active Substance: DOXORUBICIN
     Indication: ALVEOLAR RHABDOMYOSARCOMA
     Route: 065
  5. CYTARABINE ARABINOSIDE [Suspect]
     Active Substance: CYTARABINE
     Indication: ALVEOLAR RHABDOMYOSARCOMA
     Route: 037
  6. BUSULFAN. [Suspect]
     Active Substance: BUSULFAN
     Indication: ALVEOLAR RHABDOMYOSARCOMA
     Route: 065
  7. MELPHALAN. [Suspect]
     Active Substance: MELPHALAN
     Indication: ALVEOLAR RHABDOMYOSARCOMA
     Route: 065
  8. DACTINOMYCIN [Suspect]
     Active Substance: DACTINOMYCIN
     Indication: ALVEOLAR RHABDOMYOSARCOMA
     Route: 065

REACTIONS (2)
  - Disease progression [Fatal]
  - Alveolar rhabdomyosarcoma [Fatal]
